FAERS Safety Report 8092818-1 (Version None)
Quarter: 2012Q1

REPORT INFORMATION
  Report Type: 
  Country: None (occurrence: None)
  Receive Date: 20120128
  Receipt Date: 20110814
  Transmission Date: 20120608
  Serious: No
  Sender: FDA-Public Use
  Company Number: US-ABBOTT-11P-163-0846382-00

PATIENT
  Age: 41 Year
  Sex: Female

DRUGS (11)
  1. HUMIRA [Suspect]
     Indication: SPONDYLOARTHROPATHY
     Dates: start: 20110810
  2. ALLEGRA OTC [Concomitant]
     Indication: HYPERSENSITIVITY
  3. LEVOTHYROXINE SODIUM [Concomitant]
     Indication: PRODUCT USED FOR UNKNOWN INDICATION
     Dosage: .5 TAB
  4. AMLODIPINE [Concomitant]
     Indication: BLOOD PRESSURE
  5. EFFEXOR [Concomitant]
     Indication: ANXIETY
  6. B6 [Concomitant]
     Indication: TUBERCULOSIS
  7. POTASSIUM GLUCONATE TAB [Concomitant]
     Indication: PRODUCT USED FOR UNKNOWN INDICATION
  8. GLUCOSOMINE/CHONDROTIN [Concomitant]
     Indication: SPONDYLOARTHROPATHY
  9. INH [Concomitant]
     Indication: LATENT TUBERCULOSIS
  10. DICLOFENAC [Concomitant]
     Indication: SPONDYLITIS
  11. PLAQUENIL [Concomitant]
     Indication: PRODUCT USED FOR UNKNOWN INDICATION

REACTIONS (4)
  - PAIN IN EXTREMITY [None]
  - SENSATION OF HEAVINESS [None]
  - HEADACHE [None]
  - DIZZINESS [None]
